FAERS Safety Report 7798767-8 (Version None)
Quarter: 2011Q4

REPORT INFORMATION
  Report Type: 
  Country: None (occurrence: None)
  Receive Date: 20111006
  Receipt Date: 20110928
  Transmission Date: 20120403
  Serious: Yes (Other)
  Sender: FDA-Public Use
  Company Number: PHHY2011IN85455

PATIENT
  Age: 6 Year
  Sex: Male

DRUGS (3)
  1. METHYLPREDNISOLONE [Suspect]
     Dosage: UNK
  2. INOTROPES [Concomitant]
     Dosage: UNK
  3. METHYLPREDNISOLONE [Suspect]
     Indication: JUVENILE ARTHRITIS
     Dosage: UNK

REACTIONS (8)
  - POSTERIOR REVERSIBLE ENCEPHALOPATHY SYNDROME [None]
  - VISUAL IMPAIRMENT [None]
  - CONVULSION [None]
  - PYREXIA [None]
  - DRUG INEFFECTIVE [None]
  - RASH MACULAR [None]
  - BLINDNESS CORTICAL [None]
  - HYPERTENSION [None]
